FAERS Safety Report 9265069 (Version 1)
Quarter: 2013Q2

REPORT INFORMATION
  Report Type: Spontaneous
  Country: US (occurrence: None)
  Receive Date: 20130430
  Receipt Date: 20130430
  Transmission Date: 20140414
  Serious: Yes (Life-Threatening)
  Sender: FDA-Public Use
  Company Number: None

PATIENT
  Age: 67 Year
  Sex: Male
  Weight: 72.58 kg

DRUGS (2)
  1. FINASTERIDE [Suspect]
     Indication: DYSURIA
     Dosage: 1 TABLET
  2. PROSCAR [Concomitant]

REACTIONS (1)
  - Prostate cancer [None]
